FAERS Safety Report 5120165-6 (Version None)
Quarter: 2006Q3

REPORT INFORMATION
  Report Type: 
  Country: None (occurrence: None)
  Receive Date: 20060928
  Receipt Date: 20060914
  Transmission Date: 20061208
  Serious: Yes (Hospitalization)
  Sender: FDA-Public Use
  Company Number: 2006VX001371

PATIENT
  Age: 77 Year
  Sex: Male

DRUGS (4)
  1. LIBRAX [Suspect]
     Dosage: QD; PO
     Route: 048
     Dates: start: 19980601, end: 20060629
  2. METRONIDAZOLE [Suspect]
     Indication: DIVERTICULITIS
     Dosage: PO
     Route: 048
     Dates: start: 20040215, end: 20060706
  3. HEXAQUINE (HEXAQUINE) [Suspect]
     Dosage: 2 DF; QPM; PO
     Route: 048
     Dates: end: 20060629
  4. TRIVASTAL [Concomitant]

REACTIONS (10)
  - BALANCE DISORDER [None]
  - BLOOD CREATININE INCREASED [None]
  - CEREBRAL ATROPHY [None]
  - COORDINATION ABNORMAL [None]
  - DYSGRAPHIA [None]
  - EXTRAPYRAMIDAL DISORDER [None]
  - FALL [None]
  - HYPOREFLEXIA [None]
  - MUSCLE SPASTICITY [None]
  - TREMOR [None]
